FAERS Safety Report 8595907-8 (Version None)
Quarter: 2012Q3

REPORT INFORMATION
  Report Type: 
  Country: None (occurrence: None)
  Receive Date: 20120815
  Receipt Date: 19910726
  Transmission Date: 20120928
  Serious: Yes (Other)
  Sender: FDA-Public Use
  Company Number: US-ROCHE-1100527

PATIENT
  Sex: Male

DRUGS (8)
  1. MORPHINE [Concomitant]
     Route: 042
  2. MORPHINE [Concomitant]
     Route: 042
  3. HEP-LOCK [Concomitant]
  4. ACTIVASE [Suspect]
     Route: 041
  5. MORPHINE [Concomitant]
     Route: 042
  6. ACTIVASE [Suspect]
     Indication: ACUTE MYOCARDIAL INFARCTION
     Route: 042
  7. LIDOCAINE [Concomitant]
  8. MORPHINE [Concomitant]
     Route: 042

REACTIONS (1)
  - CHEST PAIN [None]
